FAERS Safety Report 4312234-5 (Version None)
Quarter: 2004Q1

REPORT INFORMATION
  Report Type: 
  Country: None (occurrence: None)
  Receive Date: 20040303
  Receipt Date: 20010501
  Transmission Date: 20041129
  Serious: Yes (Death)
  Sender: FDA-Public Use
  Company Number: US-JNJFOC-20031204216

PATIENT
  Age: 81 Year
  Sex: Female

DRUGS (16)
  1. REMICADE [Suspect]
     Indication: RHEUMATOID ARTHRITIS
     Dosage: SEE IMAGE
     Route: 042
     Dates: start: 19980105
  2. REMICADE [Suspect]
     Indication: RHEUMATOID ARTHRITIS
     Dosage: SEE IMAGE
     Route: 042
     Dates: start: 19980119
  3. REMICADE [Suspect]
     Indication: RHEUMATOID ARTHRITIS
     Dosage: SEE IMAGE
     Route: 042
     Dates: start: 19980216
  4. REMICADE [Suspect]
     Indication: RHEUMATOID ARTHRITIS
     Dosage: SEE IMAGE
     Route: 042
     Dates: start: 19980316
  5. REMICADE [Suspect]
     Indication: RHEUMATOID ARTHRITIS
     Dosage: SEE IMAGE
     Route: 042
     Dates: start: 19980414
  6. REMICADE [Suspect]
     Indication: RHEUMATOID ARTHRITIS
     Dosage: SEE IMAGE
     Route: 042
     Dates: start: 19980511
  7. REMICADE [Suspect]
     Indication: RHEUMATOID ARTHRITIS
     Dosage: SEE IMAGE
     Route: 042
     Dates: start: 19980608
  8. REMICADE [Suspect]
     Indication: RHEUMATOID ARTHRITIS
     Dosage: SEE IMAGE
     Route: 042
     Dates: start: 19980713
  9. METHOTREXATE [Concomitant]
  10. PLAQUENIL [Concomitant]
  11. FOLIC ACID [Concomitant]
  12. CYTOTEC [Concomitant]
  13. VOLTAREN [Concomitant]
  14. ACETYLSALICYLIC ACID SRT [Concomitant]
  15. TUMS (CALCIUM CARBONATE) [Concomitant]
  16. GLYBURIDE [Concomitant]

REACTIONS (1)
  - CARDIAC FAILURE CONGESTIVE [None]
